FAERS Safety Report 8887774 (Version 5)
Quarter: 2013Q4

REPORT INFORMATION
  Report Type: Spontaneous
  Country: US (occurrence: US)
  Receive Date: 20121106
  Receipt Date: 20131014
  Transmission Date: 20140711
  Serious: Yes (Hospitalization, Disabling, Other)
  Sender: FDA-Public Use
  Company Number: US-009507513-1207USA00066

PATIENT
  Sex: Female
  Weight: 59.41 kg

DRUGS (12)
  1. FOSAMAX [Suspect]
     Indication: OSTEOPENIA
     Dosage: 35 MG, QW
     Route: 048
     Dates: start: 20020104, end: 20041208
  2. FOSAMAX [Suspect]
     Indication: OSTEOPOROSIS
     Dosage: 70 MG, QW
     Route: 048
     Dates: start: 20020104, end: 20041208
  3. FOSAMAX [Suspect]
     Dosage: 70 MG, QW
     Route: 048
     Dates: start: 20050411
  4. ACTONEL [Suspect]
     Indication: OSTEOPENIA
     Dosage: 35 MG, UNK
     Dates: start: 20050601, end: 20061214
  5. BONIVA [Suspect]
     Indication: OSTEOPENIA
     Dosage: 150 MG, QM
     Dates: end: 20101005
  6. CALCIUM (UNSPECIFIED) [Concomitant]
     Indication: OSTEOPENIA
     Dosage: 600 MG, QD
     Dates: start: 1988
  7. CALCIUM (UNSPECIFIED) [Concomitant]
     Indication: OSTEOPOROSIS
  8. MAGNESIUM (UNSPECIFIED) [Concomitant]
     Dosage: UNK
     Dates: start: 1988
  9. VITAMINS (UNSPECIFIED) [Concomitant]
     Dosage: UNK
     Dates: start: 1988
  10. VITAMIN D (UNSPECIFIED) [Concomitant]
     Indication: OSTEOPENIA
     Dosage: 800 IU, QD
  11. VITAMIN D (UNSPECIFIED) [Concomitant]
     Indication: OSTEOPOROSIS
  12. ALENDRONATE SODIUM [Suspect]
     Indication: OSTEOPENIA
     Dosage: UNK
     Dates: start: 20080220

REACTIONS (40)
  - Femur fracture [Not Recovered/Not Resolved]
  - Intramedullary rod insertion [Not Recovered/Not Resolved]
  - Thyroidectomy [Unknown]
  - Low turnover osteopathy [Not Recovered/Not Resolved]
  - Osteoporosis [Not Recovered/Not Resolved]
  - Femur fracture [Not Recovered/Not Resolved]
  - Anaemia postoperative [Recovering/Resolving]
  - Stress fracture [Not Recovered/Not Resolved]
  - Endodontic procedure [Unknown]
  - Knee operation [Unknown]
  - Menopausal symptoms [Unknown]
  - Knee operation [Unknown]
  - Endodontic procedure [Unknown]
  - Knee operation [Unknown]
  - Knee operation [Unknown]
  - Enchondroma [Unknown]
  - Tendonitis [Unknown]
  - Arthropathy [Unknown]
  - Bursitis [Unknown]
  - Oesophageal disorder [Unknown]
  - Osteoarthritis [Unknown]
  - Depression [Unknown]
  - Osteoarthritis [Unknown]
  - Joint effusion [Unknown]
  - Meniscus injury [Unknown]
  - Loose body in joint [Unknown]
  - Cartilage injury [Unknown]
  - Thyroid neoplasm [Unknown]
  - Lip disorder [Unknown]
  - Pulmonary mass [Unknown]
  - Ear discomfort [Unknown]
  - Upper respiratory tract infection [Unknown]
  - Ear pain [Unknown]
  - Otorrhoea [Unknown]
  - Herpes virus infection [Unknown]
  - Anaemia [Unknown]
  - Abdominal discomfort [Unknown]
  - Hypersensitivity [Unknown]
  - Drug ineffective [Unknown]
  - Drug ineffective [Unknown]
